FAERS Safety Report 10327387 (Version 1)
Quarter: 2014Q3

REPORT INFORMATION
  Report Type: Spontaneous
  Country: US (occurrence: US)
  Receive Date: 20140721
  Receipt Date: 20140721
  Transmission Date: 20150326
  Serious: No
  Sender: FDA-Public Use
  Company Number: US-009507513-1407USA006277

PATIENT

DRUGS (1)
  1. NASONEX [Suspect]
     Active Substance: MOMETASONE FUROATE
     Dosage: STRENGTH: 50 (UNIT NOT PROVIDED)
     Route: 045

REACTIONS (2)
  - No adverse event [Unknown]
  - Product container issue [Unknown]
